FAERS Safety Report 11766627 (Version 3)
Quarter: 2015Q4

REPORT INFORMATION
  Report Type: Spontaneous
  Country: FI (occurrence: FI)
  Receive Date: 20151123
  Receipt Date: 20151203
  Transmission Date: 20160304
  Serious: Yes (Life-Threatening)
  Sender: FDA-Public Use
  Company Number: FI-009507513-1511FIN009304

PATIENT
  Age: 90 Year
  Sex: Female

DRUGS (11)
  1. INVANZ [Suspect]
     Active Substance: ERTAPENEM SODIUM
     Indication: WOUND INFECTION BACTERIAL
     Dosage: 1 G, ONCE A DAY FOR ONE MONTH
     Route: 042
     Dates: start: 20151015
  2. CARDACE (ENALAPRIL MALEATE) [Concomitant]
     Active Substance: ENALAPRIL MALEATE
     Dosage: UNK
  3. SOMAC [Concomitant]
     Active Substance: PANTOPRAZOLE SODIUM
     Dosage: UNK
  4. NALOXONE (NALOXONE HYDROCHLORIDE) [Concomitant]
     Active Substance: NALOXONE HYDROCHLORIDE
     Dosage: UNK
  5. TARGINIQ ER [Interacting]
     Active Substance: NALOXONE HYDROCHLORIDE\OXYCODONE HYDROCHLORIDE
     Indication: PAIN
     Dosage: 5/2.5 MG, TWICE DAILY
     Dates: start: 20151019, end: 20151027
  6. SPIRONOLACTONE. [Concomitant]
     Active Substance: SPIRONOLACTONE
     Dosage: UNK
  7. FURESIS [Concomitant]
     Active Substance: FUROSEMIDE
     Dosage: UNK
  8. PANADOL [Concomitant]
     Active Substance: ACETAMINOPHEN
     Dosage: UNK
  9. KALCIPOS D [Concomitant]
     Dosage: 1000G/800 IC TOTAL DAILY DOSE
  10. TARGINIQ ER [Interacting]
     Active Substance: NALOXONE HYDROCHLORIDE\OXYCODONE HYDROCHLORIDE
     Dosage: 1X1 DOSING
  11. C-VIMIN [Concomitant]
     Dosage: UNK

REACTIONS (7)
  - Drug interaction [Recovered/Resolved]
  - Nausea [Recovered/Resolved]
  - Respiratory depression [Recovered/Resolved]
  - Sedation [Recovered/Resolved]
  - Oxygen saturation decreased [Recovered/Resolved]
  - Pain [Recovered/Resolved]
  - Drug level increased [Recovered/Resolved]

NARRATIVE: CASE EVENT DATE: 2015
